FAERS Safety Report 4327777-8 (Version None)
Quarter: 2004Q1

REPORT INFORMATION
  Report Type: 
  Country: None (occurrence: None)
  Receive Date: 20040331
  Receipt Date: 20040324
  Transmission Date: 20041129
  Serious: Yes (Other)
  Sender: FDA-Public Use
  Company Number: 200413456GDDC

PATIENT
  Age: 25 Year
  Sex: Female

DRUGS (3)
  1. FLAGYL [Suspect]
     Indication: TOOTH ABSCESS
     Route: 048
     Dates: start: 20030826, end: 20030828
  2. NORETHINDRONE ACETATE AND ETHINYL ESTRADIOL [Concomitant]
     Indication: ORAL CONTRACEPTION
     Dates: start: 19930101, end: 20040201
  3. ZIRTEK [Concomitant]
     Indication: RHINITIS ALLERGIC

REACTIONS (1)
  - SOLAR URTICARIA [None]
